FAERS Safety Report 21296966 (Version 2)
Quarter: 2022Q3

REPORT INFORMATION
  Report Type: Spontaneous
  Country: DE (occurrence: DE)
  Receive Date: 20220906
  Receipt Date: 20220916
  Transmission Date: 20221027
  Serious: Yes (Other)
  Sender: FDA-Public Use
  Company Number: DE-NOVARTISPH-NVSC2022DE165194

PATIENT
  Age: 62 Year
  Sex: Male

DRUGS (25)
  1. ENTRESTO [Suspect]
     Active Substance: SACUBITRIL\VALSARTAN
     Indication: Product used for unknown indication
     Dosage: 1 DOSAGE FORM, BID (24/26 MG) (1-0-1-0)
     Route: 065
     Dates: start: 20220517, end: 20220707
  2. BISOPROLOL [Concomitant]
     Active Substance: BISOPROLOL
     Indication: Product used for unknown indication
     Dosage: UNK (0-0-?-0)
     Route: 065
  3. ASPIRIN [Concomitant]
     Active Substance: ASPIRIN
     Indication: Product used for unknown indication
     Dosage: UNK, QD (1-0-0-0)
     Route: 065
  4. CLOPIDOGREL DENK [Concomitant]
     Indication: Product used for unknown indication
     Dosage: UNK, QD (1-0-0-0)
     Route: 065
  5. TORSEMIDE [Concomitant]
     Active Substance: TORSEMIDE
     Indication: Product used for unknown indication
     Dosage: UNK, BID (1-1-0-0)
     Route: 065
  6. XIPAMIDE [Concomitant]
     Active Substance: XIPAMIDE
     Indication: Product used for unknown indication
     Dosage: UNK, QD (1-0-0-0)
     Route: 065
  7. SEVELAMER CARBONATE [Concomitant]
     Active Substance: SEVELAMER CARBONATE
     Indication: Product used for unknown indication
     Dosage: UNK (3-3-3-0)
     Route: 065
  8. ROCALTROL [Concomitant]
     Active Substance: CALCITRIOL
     Indication: Product used for unknown indication
     Dosage: UNK, QD (1-0-0-0)
     Route: 065
  9. CHOLECALCIFEROL [Concomitant]
     Active Substance: CHOLECALCIFEROL
     Indication: Product used for unknown indication
     Dosage: UNK (1X WEEKLY 1-0-0-0)
     Route: 065
  10. VELTASSA [Concomitant]
     Active Substance: PATIROMER
     Indication: Product used for unknown indication
     Dosage: UNK (AS NEEDED, ON WEEKENDS DAILY)
     Route: 065
  11. SODIUM BICARBONATE [Concomitant]
     Active Substance: SODIUM BICARBONATE
     Indication: Product used for unknown indication
     Dosage: UNK, TID (1-(1)-1-0)
     Route: 065
  12. AMLODIPINE BESYLATE [Concomitant]
     Active Substance: AMLODIPINE BESYLATE
     Indication: Product used for unknown indication
     Dosage: UNK (0-0-1-0, ON TUESDAY, THURSDAY, SATURDAY AND SUNDAY: 1-0-1-0)
     Route: 065
  13. BENSERAZIDE\LEVODOPA [Concomitant]
     Active Substance: BENSERAZIDE\LEVODOPA
     Indication: Product used for unknown indication
     Dosage: UNK, QD (0-0-1-0)
     Route: 065
  14. ALPRAZOLAM [Concomitant]
     Active Substance: ALPRAZOLAM
     Indication: Product used for unknown indication
     Dosage: UNK (AS NEEDED)
     Route: 065
  15. SYMBICORT [Concomitant]
     Active Substance: BUDESONIDE\FORMOTEROL FUMARATE DIHYDRATE
     Indication: Product used for unknown indication
     Dosage: 1 DOSAGE FORM (1 PUFF, AS NEEDED)
     Route: 065
  16. ESOMEPRAZOLE [Concomitant]
     Active Substance: ESOMEPRAZOLE
     Indication: Product used for unknown indication
     Dosage: UNK, BID (1-0-1-0)
     Route: 065
     Dates: start: 20210526
  17. LACTULOSE [Concomitant]
     Active Substance: LACTULOSE
     Indication: Product used for unknown indication
     Dosage: UNK (1-0-0-0 AS NEEDED)
     Route: 065
  18. MIRTAZAPINE [Concomitant]
     Active Substance: MIRTAZAPINE
     Indication: Product used for unknown indication
     Dosage: UNK, QD (0-0-0-1)
     Route: 065
  19. TORSEMIDE [Concomitant]
     Active Substance: TORSEMIDE
     Indication: Product used for unknown indication
     Dosage: UNK, BID (1-1-0-0)
     Route: 065
  20. METAMIZOLE [Concomitant]
     Active Substance: METAMIZOLE
     Indication: Product used for unknown indication
     Dosage: UNK (AS NEEDED 30?, MAXIMUM OF 4X/ DAILY )
     Route: 065
  21. TRAMADOL [Concomitant]
     Active Substance: TRAMADOL
     Indication: Product used for unknown indication
     Dosage: UNK, BID (1-0-1-0)
     Route: 065
  22. RENAVIT [Concomitant]
     Indication: Product used for unknown indication
     Dosage: UNK, QD (0-1-0-0)
     Route: 065
  23. ALLOPURINOL 1 A PHARMA [Concomitant]
     Indication: Product used for unknown indication
     Dosage: UNK, QD (1-0-0-0)
     Route: 065
  24. FLUVASTATIN SODIUM [Concomitant]
     Active Substance: FLUVASTATIN SODIUM
     Indication: Product used for unknown indication
     Dosage: UNK, QD- (0-0-1-0)
     Route: 065
  25. CANDESARTAN CILEXETIL [Concomitant]
     Active Substance: CANDESARTAN CILEXETIL
     Indication: Product used for unknown indication
     Dosage: UNK, BID (1-0-1-0)
     Route: 065
     Dates: start: 20220710

REACTIONS (1)
  - Gamma-glutamyltransferase increased [Recovering/Resolving]

NARRATIVE: CASE EVENT DATE: 20220704
